FAERS Safety Report 17738831 (Version 1)
Quarter: 2020Q2

REPORT INFORMATION
  Report Type: Spontaneous
  Country: US (occurrence: US)
  Receive Date: 20200430
  Receipt Date: 20200430
  Transmission Date: 20200714
  Serious: No
  Sender: FDA-Public Use
  Company Number: None

PATIENT

DRUGS (1)
  1. OPTIFORM CANNABIDIOL (CBD) [Suspect]
     Active Substance: CANNABIDIOL

REACTIONS (3)
  - Manufacturing facilities issue [None]
  - Abdominal discomfort [None]
  - Inadequate aseptic technique in manufacturing of product [None]

NARRATIVE: CASE EVENT DATE: 20191011
